FAERS Safety Report 8374169-0 (Version None)
Quarter: 2012Q2

REPORT INFORMATION
  Report Type: 
  Country: None (occurrence: None)
  Receive Date: 20120521
  Receipt Date: 20120516
  Transmission Date: 20120825
  Serious: Yes (Other)
  Sender: FDA-Public Use
  Company Number: JP-GLAXOSMITHKLINE-B0794281A

PATIENT
  Sex: Male
  Weight: 53 kg

DRUGS (15)
  1. LODOPIN [Concomitant]
     Dosage: 100MG PER DAY
     Route: 048
     Dates: start: 20120203
  2. NOVOLIN N [Concomitant]
     Route: 058
  3. LAMICTAL [Suspect]
     Indication: BIPOLAR I DISORDER
     Dosage: 25MG PER DAY
     Route: 048
     Dates: start: 20120308, end: 20120321
  4. LAMICTAL [Suspect]
     Dosage: 50MG PER DAY
     Route: 048
     Dates: start: 20120322, end: 20120402
  5. NOVORAPID [Concomitant]
     Route: 058
  6. SLOW-K [Concomitant]
     Route: 048
  7. ALLOPURINOL [Concomitant]
     Dosage: 100MG PER DAY
     Route: 048
  8. GASCON [Concomitant]
     Route: 048
  9. ALDACTONE [Concomitant]
     Dosage: 25MG PER DAY
     Route: 048
  10. MAGMITT [Concomitant]
     Route: 048
  11. MONILAC [Concomitant]
     Route: 048
  12. LIVACT [Concomitant]
     Route: 048
  13. CHINESE MEDICINE [Concomitant]
     Route: 048
  14. PURSENNID [Concomitant]
     Route: 048
  15. URSO 250 [Concomitant]
     Route: 048

REACTIONS (12)
  - HAEMOGLOBIN DECREASED [None]
  - BONE MARROW FAILURE [None]
  - ANAEMIA [None]
  - WHITE BLOOD CELL COUNT DECREASED [None]
  - NEUTROPHIL PERCENTAGE DECREASED [None]
  - FATIGUE [None]
  - DISTURBANCE IN ATTENTION [None]
  - PLATELET COUNT DECREASED [None]
  - DYSPNOEA [None]
  - DIZZINESS [None]
  - BRADYKINESIA [None]
  - FALL [None]
